FAERS Safety Report 8706121 (Version 3)
Quarter: 2012Q4

REPORT INFORMATION
  Report Type: Report from Study
  Country: NL (occurrence: NL)
  Receive Date: 20120803
  Receipt Date: 20121019
  Transmission Date: 20130627
  Serious: Yes (Hospitalization)
  Sender: FDA-Public Use
  Company Number: NL-ROCHE-1091808

PATIENT
  Age: 69 Year
  Sex: Female
  Weight: 71.5 kg

DRUGS (2)
  1. VEMURAFENIB [Suspect]
     Indication: METASTATIC MALIGNANT MELANOMA
     Route: 048
     Dates: start: 20110912, end: 20120624
  2. VEMURAFENIB [Suspect]
     Route: 048
     Dates: start: 20120712

REACTIONS (1)
  - Cardiac failure [Recovered/Resolved]
